FAERS Safety Report 12775937 (Version 1)
Quarter: 2016Q3

REPORT INFORMATION
  Report Type: Spontaneous
  Country: PT (occurrence: PT)
  Receive Date: 20160923
  Receipt Date: 20160923
  Transmission Date: 20161109
  Serious: Yes (Other)
  Sender: FDA-Public Use
  Company Number: PHHY2016PT128524

PATIENT
  Age: 30 Year
  Sex: Male

DRUGS (3)
  1. DIAZEPAM. [Suspect]
     Active Substance: DIAZEPAM
     Indication: PARAPLEGIA
     Dosage: 5 MG, ID
     Route: 065
  2. OXYBUTYNIN [Suspect]
     Active Substance: OXYBUTYNIN
     Indication: PARAPLEGIA
     Dosage: 5 MG, ID
     Route: 065
  3. BACLOFEN. [Suspect]
     Active Substance: BACLOFEN
     Indication: PARAPLEGIA
     Dosage: 25 MG, ID
     Route: 065

REACTIONS (2)
  - Ejaculation disorder [Recovering/Resolving]
  - Muscle contractions involuntary [Unknown]
